FAERS Safety Report 25012695 (Version 2)
Quarter: 2025Q2

REPORT INFORMATION
  Report Type: Spontaneous
  Country: CN (occurrence: CN)
  Receive Date: 20250226
  Receipt Date: 20250608
  Transmission Date: 20250716
  Serious: Yes (Other)
  Sender: COHERUS
  Company Number: CN-SHANGHAI JUNSHI BIOSCIENCES CO., LTD.-CN2025013127

PATIENT

DRUGS (9)
  1. TORIPALIMAB [Suspect]
     Active Substance: TORIPALIMAB
     Indication: Cholangiocarcinoma
     Route: 041
  2. TORIPALIMAB [Suspect]
     Active Substance: TORIPALIMAB
     Indication: Metastases to liver
     Route: 041
     Dates: start: 20250204, end: 20250204
  3. TORIPALIMAB [Suspect]
     Active Substance: TORIPALIMAB
     Indication: Metastatic neoplasm
  4. GEMCITABINE HYDROCHLORIDE [Suspect]
     Active Substance: GEMCITABINE HYDROCHLORIDE
     Indication: Cholangiocarcinoma
  5. GEMCITABINE HYDROCHLORIDE [Suspect]
     Active Substance: GEMCITABINE HYDROCHLORIDE
     Indication: Metastases to liver
     Route: 041
     Dates: start: 20250203, end: 20250203
  6. GEMCITABINE HYDROCHLORIDE [Suspect]
     Active Substance: GEMCITABINE HYDROCHLORIDE
     Indication: Metastatic neoplasm
  7. PACLITAXEL [Suspect]
     Active Substance: PACLITAXEL
     Indication: Cholangiocarcinoma
     Route: 041
     Dates: start: 20250203, end: 20250203
  8. PACLITAXEL [Suspect]
     Active Substance: PACLITAXEL
     Indication: Metastases to liver
  9. PACLITAXEL [Suspect]
     Active Substance: PACLITAXEL
     Indication: Metastatic neoplasm

REACTIONS (1)
  - Myelosuppression [Recovered/Resolved]

NARRATIVE: CASE EVENT DATE: 20250208
